FAERS Safety Report 25533167 (Version 1)
Quarter: 2025Q3

REPORT INFORMATION
  Report Type: Report from Study
  Country: US (occurrence: US)
  Receive Date: 20250709
  Receipt Date: 20250709
  Transmission Date: 20251021
  Serious: Yes (Other)
  Sender: ROCHE
  Company Number: US-ROCHE-3204710

PATIENT
  Age: 87 Year
  Sex: Female

DRUGS (3)
  1. ACTEMRA [Suspect]
     Active Substance: TOCILIZUMAB
     Indication: Systemic scleroderma
     Route: 058
  2. ACTEMRA [Suspect]
     Active Substance: TOCILIZUMAB
     Route: 058
  3. ACTEMRA [Suspect]
     Active Substance: TOCILIZUMAB
     Route: 058

REACTIONS (11)
  - Diarrhoea [Unknown]
  - Arthritis [Unknown]
  - Inflammation [Unknown]
  - Blood pressure measurement [Unknown]
  - Arthralgia [Unknown]
  - Vomiting [Unknown]
  - Gastritis [Unknown]
  - Pruritus [Unknown]
  - Joint range of motion decreased [Unknown]
  - Off label use [Unknown]
  - Tendon rupture [Unknown]
